FAERS Safety Report 17816928 (Version 1)
Quarter: 2020Q2

REPORT INFORMATION
  Report Type: Spontaneous
  Country: CN (occurrence: CN)
  Receive Date: 20200522
  Receipt Date: 20200522
  Transmission Date: 20200714
  Serious: Yes (Other)
  Sender: FDA-Public Use
  Company Number: CN-ROCHE-2604088

PATIENT
  Age: 69 Year
  Sex: Male

DRUGS (18)
  1. AVASTIN [Suspect]
     Active Substance: BEVACIZUMAB
     Indication: METASTASES TO LIVER
     Dosage: DAY1, 3 CYCLES
     Route: 041
     Dates: start: 20190522, end: 20190808
  2. XELODA [Suspect]
     Active Substance: CAPECITABINE
     Indication: COLON CANCER
     Dosage: DAY1-14, 10 CYCLES
     Route: 048
     Dates: start: 20190906, end: 20200410
  3. OXALIPLATIN. [Concomitant]
     Active Substance: OXALIPLATIN
     Indication: COLON CANCER
     Dosage: DAY1, 3 CYCLES
     Route: 041
     Dates: start: 20190522
  4. REGORAFENIB. [Concomitant]
     Active Substance: REGORAFENIB
     Indication: METASTASES TO LIVER
  5. CAMRELIZUMAB [Concomitant]
     Active Substance: CAMRELIZUMAB
     Indication: COLON CANCER
     Dosage: DAY 1-21
     Route: 041
     Dates: start: 20200422
  6. CALCIUM FOLINATE [Concomitant]
     Active Substance: LEUCOVORIN CALCIUM
     Indication: COLON CANCER
     Dosage: DAY1, 7 CYCLES
     Route: 041
     Dates: start: 20190128, end: 20190422
  7. AVASTIN [Suspect]
     Active Substance: BEVACIZUMAB
     Indication: COLON CANCER
     Dosage: DAY1, 7 CYCLES
     Route: 041
     Dates: start: 20190128, end: 20190422
  8. CALCIUM FOLINATE [Concomitant]
     Active Substance: LEUCOVORIN CALCIUM
     Indication: METASTASES TO LIVER
     Dosage: DAY1, 3 CYCLES
     Route: 041
     Dates: start: 20190522, end: 20190808
  9. 5-FLUOROURACIL [FLUOROURACIL] [Concomitant]
     Active Substance: FLUOROURACIL
     Indication: METASTASES TO LIVER
     Dosage: DAY1, 3 CYCLES, 2400MG/M2 CIV 46H
     Route: 065
     Dates: start: 20190522, end: 20190808
  10. REGORAFENIB. [Concomitant]
     Active Substance: REGORAFENIB
     Indication: COLON CANCER
     Dosage: DAY 1-21
     Route: 048
     Dates: start: 20200422
  11. AVASTIN [Suspect]
     Active Substance: BEVACIZUMAB
     Dosage: DAY1, 10 CYCLES
     Route: 041
     Dates: start: 20190906, end: 20200410
  12. IRINOTECAN [Concomitant]
     Active Substance: IRINOTECAN
     Indication: COLON CANCER
     Dosage: DAY1, 7 CYCLES
     Route: 041
     Dates: start: 20190128, end: 20190422
  13. CAMRELIZUMAB [Concomitant]
     Active Substance: CAMRELIZUMAB
     Indication: METASTASES TO LIVER
  14. 5-FLUOROURACIL [FLUOROURACIL] [Concomitant]
     Active Substance: FLUOROURACIL
     Indication: COLON CANCER
     Dosage: DAY1, 7 CYCLES, 2400MG/M2 CIV 46H
     Route: 042
     Dates: start: 20190128, end: 20190422
  15. IRINOTECAN [Concomitant]
     Active Substance: IRINOTECAN
     Route: 065
     Dates: start: 20190919
  16. OXALIPLATIN. [Concomitant]
     Active Substance: OXALIPLATIN
     Indication: METASTASES TO LIVER
  17. XELODA [Suspect]
     Active Substance: CAPECITABINE
     Indication: METASTASES TO LIVER
  18. IRINOTECAN [Concomitant]
     Active Substance: IRINOTECAN
     Indication: METASTASES TO LIVER
     Dosage: DAY1, 3 CYCLES
     Route: 041
     Dates: start: 20190522, end: 20190808

REACTIONS (3)
  - Asthenia [Unknown]
  - Gastrointestinal disorder [Unknown]
  - Bone marrow failure [Unknown]
